FAERS Safety Report 6344063-5 (Version None)
Quarter: 2009Q3

REPORT INFORMATION
  Report Type: 
  Country: None (occurrence: None)
  Receive Date: 20090908
  Receipt Date: 20090826
  Transmission Date: 20100115
  Serious: Yes (Hospitalization, Other)
  Sender: FDA-Public Use
  Company Number: JP-PFIZER INC-2009253064

PATIENT
  Age: 56 Year

DRUGS (1)
  1. LIPITOR [Suspect]
     Indication: HYPERLIPIDAEMIA
     Dosage: 10 MG, UID/QD
     Route: 048
     Dates: start: 20090511, end: 20090525

REACTIONS (2)
  - LIVER DISORDER [None]
  - RHABDOMYOLYSIS [None]
